FAERS Safety Report 14236164 (Version 1)
Quarter: 2017Q4

REPORT INFORMATION
  Report Type: Spontaneous
  Country: DE (occurrence: DE)
  Receive Date: 20171129
  Receipt Date: 20171129
  Transmission Date: 20180321
  Serious: Yes (Death, Other)
  Sender: FDA-Public Use
  Company Number: PHHY2017DE174202

PATIENT
  Age: 57 Year
  Sex: Female

DRUGS (2)
  1. DABRAFENIB [Suspect]
     Active Substance: DABRAFENIB
     Indication: MALIGNANT MELANOMA
     Dosage: UNK
     Route: 065
     Dates: start: 201607
  2. TRAMETINIB [Suspect]
     Active Substance: TRAMETINIB
     Indication: MALIGNANT MELANOMA
     Dosage: UNK
     Route: 065
     Dates: start: 201607

REACTIONS (5)
  - Malignant neoplasm progression [Fatal]
  - Procedural complication [Fatal]
  - Abscess soft tissue [Unknown]
  - Epilepsy [Fatal]
  - Malignant melanoma [Fatal]

NARRATIVE: CASE EVENT DATE: 201702
